FAERS Safety Report 6244797-7 (Version None)
Quarter: 2009Q2

REPORT INFORMATION
  Report Type: 
  Country: None (occurrence: None)
  Receive Date: 20090623
  Receipt Date: 20090623
  Transmission Date: 20091009
  Serious: Yes (Other)
  Sender: FDA-Public Use
  Company Number: None

PATIENT
  Sex: Male
  Weight: 90.7194 kg

DRUGS (1)
  1. VALPROIC ACID 250 MG [Suspect]
     Indication: BIPOLAR DISORDER
     Dosage: 250 MG QD PO
     Route: 048
     Dates: start: 20080910, end: 20090515

REACTIONS (2)
  - DERMATITIS [None]
  - PRODUCT SUBSTITUTION ISSUE [None]
